FAERS Safety Report 12452939 (Version 3)
Quarter: 2019Q2

REPORT INFORMATION
  Report Type: Spontaneous
  Country: US (occurrence: US)
  Receive Date: 20160609
  Receipt Date: 20190528
  Transmission Date: 20190711
  Serious: Yes (Hospitalization, Other)
  Sender: FDA-Public Use
  Company Number: US-BIOGEN-2016BI00247506

PATIENT
  Age: 55 Year
  Sex: Female

DRUGS (1)
  1. AVONEX [Suspect]
     Active Substance: INTERFERON BETA-1A
     Indication: MULTIPLE SCLEROSIS
     Route: 050
     Dates: start: 19970401, end: 201803

REACTIONS (5)
  - Optic nerve injury [Recovered/Resolved]
  - Intracranial aneurysm [Not Recovered/Not Resolved]
  - Hemianaesthesia [Recovered/Resolved]
  - Cerebrovascular accident [Recovered/Resolved]
  - Visual impairment [Unknown]

NARRATIVE: CASE EVENT DATE: 201602
